FAERS Safety Report 11646537 (Version 1)
Quarter: 2015Q4

REPORT INFORMATION
  Report Type: Spontaneous
  Country: US (occurrence: US)
  Receive Date: 20151020
  Receipt Date: 20151020
  Transmission Date: 20160304
  Serious: No
  Sender: FDA-Public Use
  Company Number: US-BAUSCH-BL-2015-017257

PATIENT
  Age: 27 Year
  Sex: Female

DRUGS (1)
  1. LOTEMAX [Suspect]
     Active Substance: LOTEPREDNOL ETABONATE
     Indication: EYE ALLERGY
     Dosage: APPLIED 4 DROPS IN THE LEFT EYE EVERY 3 TO 4 HOURS
     Route: 047
     Dates: start: 20150706, end: 20150707

REACTIONS (5)
  - Skin disorder [Recovering/Resolving]
  - Hypoaesthesia eye [Recovering/Resolving]
  - Eye swelling [Recovering/Resolving]
  - Intraocular pressure increased [Recovering/Resolving]
  - Local swelling [Recovering/Resolving]

NARRATIVE: CASE EVENT DATE: 20150707
